FAERS Safety Report 17581724 (Version 2)
Quarter: 2020Q1

REPORT INFORMATION
  Report Type: Report from Study
  Country: US (occurrence: US)
  Receive Date: 20200325
  Receipt Date: 20200331
  Transmission Date: 20200409
  Serious: Yes (Other)
  Sender: FDA-Public Use
  Company Number: US-AMGEN-USASL2020047580

PATIENT
  Age: 65 Year
  Sex: Female

DRUGS (3)
  1. HUMIRA [Suspect]
     Active Substance: ADALIMUMAB
     Dosage: 40 MG/0.4ML (1 IN 2 WK)
     Route: 058
     Dates: start: 202002
  2. HUMIRA [Suspect]
     Active Substance: ADALIMUMAB
     Indication: PSORIASIS
     Dosage: 40 MG/0.4ML (1 IN 2 WK)
     Route: 058
  3. ENBREL [Suspect]
     Active Substance: ETANERCEPT
     Indication: PRODUCT USED FOR UNKNOWN INDICATION
     Dosage: UNK
     Route: 065

REACTIONS (4)
  - Bone pain [Unknown]
  - Myalgia [Unknown]
  - Therapeutic product effect decreased [Unknown]
  - Lymphoma [Unknown]

NARRATIVE: CASE EVENT DATE: 202003
